FAERS Safety Report 14200509 (Version 2)
Quarter: 2017Q4

REPORT INFORMATION
  Report Type: Spontaneous
  Country: US (occurrence: US)
  Receive Date: 20171117
  Receipt Date: 20171208
  Transmission Date: 20180321
  Serious: Yes (Hospitalization, Other)
  Sender: FDA-Public Use
  Company Number: US-NOVOPROD-528650

PATIENT
  Age: 80 Year
  Sex: Male
  Weight: 86.17 kg

DRUGS (3)
  1. NOVOLOG [Suspect]
     Active Substance: INSULIN ASPART
     Dosage: 10 U, TID BEFORE MEALS
     Route: 058
     Dates: start: 20170120
  2. NOVOLIN N [Suspect]
     Active Substance: INSULIN HUMAN
     Indication: TYPE 2 DIABETES MELLITUS
     Dosage: 45 UNITS QD BEFORE BREAKFAST
     Route: 058
     Dates: end: 20170119
  3. NOVOLOG [Suspect]
     Active Substance: INSULIN ASPART
     Indication: TYPE 2 DIABETES MELLITUS
     Dosage: 40 UNITS BEFORE BREAKFAST, 75 UNITS BEFORE LUNCH, 85 UNITS BEFORE DINNER PLUS SLIDING SCALE
     Route: 058
     Dates: end: 20170119

REACTIONS (4)
  - Blood glucose increased [Not Recovered/Not Resolved]
  - Hypoglycaemic unconsciousness [Recovered/Resolved]
  - Drug prescribing error [Recovered/Resolved]
  - Blood glucose decreased [Recovered/Resolved]
